FAERS Safety Report 25354530 (Version 3)
Quarter: 2025Q4

REPORT INFORMATION
  Report Type: Spontaneous
  Country: US (occurrence: US)
  Receive Date: 20250523
  Receipt Date: 20251229
  Transmission Date: 20260118
  Serious: No
  Sender: MERCK SHARP & DOHME LLC
  Company Number: US-009507513-2282556

PATIENT
  Age: 28 Year
  Sex: Male

DRUGS (7)
  1. SOTATERCEPT [Suspect]
     Active Substance: SOTATERCEPT
  2. SOTATERCEPT [Suspect]
     Active Substance: SOTATERCEPT
  3. SOTATERCEPT [Suspect]
     Active Substance: SOTATERCEPT
  4. SOTATERCEPT [Suspect]
     Active Substance: SOTATERCEPT
  5. TYVASO [Suspect]
     Active Substance: TREPROSTINIL
     Indication: Pulmonary arterial hypertension
     Dosage: DELIVERED BY TYVASO INHALATION DEVICE (TD-300/A).
     Route: 055
     Dates: start: 202210
  6. TYVASO [Suspect]
     Active Substance: TREPROSTINIL
     Indication: Pulmonary arterial hypertension
     Dosage: DOSE: 42 UG- 54 UG (7-9 BREATHS). STRENGTH: 0.6 MG/ML. DELIVERED BY TYVASO INHALATION DEVICE (TD-...
     Route: 055
  7. TADLIQ [Concomitant]
     Active Substance: TADALAFIL

REACTIONS (4)
  - Haemorrhage [Recovered/Resolved]
  - Diarrhoea [Unknown]
  - Laboratory test abnormal [Unknown]
  - Gingival bleeding [Recovering/Resolving]

NARRATIVE: CASE EVENT DATE: 20250401
